FAERS Safety Report 6187756-5 (Version None)
Quarter: 2009Q2

REPORT INFORMATION
  Report Type: 
  Country: None (occurrence: None)
  Receive Date: 20090511
  Receipt Date: 20090511
  Transmission Date: 20091009
  Serious: No
  Sender: FDA-Public Use
  Company Number: None

PATIENT
  Age: 71 Year
  Sex: Male
  Weight: 83.9154 kg

DRUGS (1)
  1. DIGOXIN [Suspect]
     Dosage: 25 MG 1 A DAY

REACTIONS (6)
  - ARTHRALGIA [None]
  - HYPOTENSION [None]
  - NAUSEA [None]
  - PAIN IN EXTREMITY [None]
  - VISION BLURRED [None]
  - VOMITING [None]
